FAERS Safety Report 8209956-2 (Version None)
Quarter: 2012Q1

REPORT INFORMATION
  Report Type: 
  Country: None (occurrence: None)
  Receive Date: 20120314
  Receipt Date: 20110314
  Transmission Date: 20120608
  Serious: No
  Sender: FDA-Public Use
  Company Number: US-ASTRAZENECA-2011SE14285

PATIENT
  Age: 56 Year
  Sex: Female

DRUGS (1)
  1. TOPROL-XL [Suspect]
     Indication: ARRHYTHMIA
     Route: 048

REACTIONS (3)
  - EYE HAEMORRHAGE [None]
  - INAPPROPRIATE SCHEDULE OF DRUG ADMINISTRATION [None]
  - BLOOD PRESSURE INCREASED [None]
